FAERS Safety Report 19738868 (Version 11)
Quarter: 2022Q2

REPORT INFORMATION
  Report Type: Report from Study
  Country: GB (occurrence: GB)
  Receive Date: 20210824
  Receipt Date: 20220627
  Transmission Date: 20220721
  Serious: Yes (Death, Hospitalization, Other)
  Sender: FDA-Public Use
  Company Number: None

PATIENT
  Age: 71 Year
  Sex: Female
  Weight: 51 kg

DRUGS (34)
  1. AMLODIPINE [Suspect]
     Active Substance: AMLODIPINE BESYLATE
     Indication: Hypertension
     Dosage: ONCE A DAY
  2. AMOXICILLIN [Suspect]
     Active Substance: AMOXICILLIN
     Indication: Product used for unknown indication
     Dosage: ONCE A DAY
     Dates: start: 20200810, end: 20200816
  3. ATEZOLIZUMAB [Suspect]
     Active Substance: ATEZOLIZUMAB
     Indication: Non-small cell lung cancer
     Dosage: 1200 MG, EVERY 3 WEEKS
     Route: 041
     Dates: start: 20200729
  4. CARBOPLATIN [Suspect]
     Active Substance: CARBOPLATIN
     Indication: Non-small cell lung cancer
     Dosage: 450 MG
     Dates: start: 20210729
  5. CIPROFLOXACIN [Suspect]
     Active Substance: CIPROFLOXACIN
     Indication: Prophylaxis
     Dosage: Q12H
     Dates: start: 20200827
  6. CLOPIDOGREL [Suspect]
     Active Substance: CLOPIDOGREL BISULFATE
     Indication: Hypertension
     Dosage: ONCE A DAY
  7. CODEINE PHOSPHATE [Suspect]
     Active Substance: CODEINE PHOSPHATE
     Indication: Pain
     Dosage: 0.5, DAILY
     Route: 065
  8. CYCLIZINE [Suspect]
     Active Substance: CYCLIZINE
     Indication: Vomiting
     Dosage: FOUR TIMES/DAY (1 IN 0.25 DAY)
  9. DEXAMETHASONE [Suspect]
     Active Substance: DEXAMETHASONE
     Indication: Dysphagia
     Dosage: ONCE A DAY
     Dates: start: 20200826
  10. BENZYDAMINE [Suspect]
     Active Substance: BENZYDAMINE
     Indication: Prophylaxis
     Dosage: UNKNOWN
     Dates: start: 20200819
  11. ETOPOSIDE [Suspect]
     Active Substance: ETOPOSIDE
     Indication: Non-small cell lung cancer
     Dosage: 600 MG
     Route: 048
     Dates: start: 20200730
  12. FLUCONAZOLE [Suspect]
     Active Substance: FLUCONAZOLE
     Indication: Candida infection
     Dosage: ONCE A DAY
  13. FORMOTEROL [Suspect]
     Active Substance: FORMOTEROL
     Indication: Hypertension
     Dosage: TWO TIMES A DAY
     Dates: start: 20200301
  14. LACTULOSE [Suspect]
     Active Substance: LACTULOSE
     Indication: Prophylaxis
     Dosage: TWO TIMES A DAY
  15. LANSOPRAZOLE [Suspect]
     Active Substance: LANSOPRAZOLE
     Indication: Prophylaxis
     Dosage: 1 MILLIGRAM, ONCE A DAY
     Dates: start: 20170101
  16. LINEZOLID [Suspect]
     Active Substance: LINEZOLID
     Indication: Neutropenic sepsis
     Dosage: UNKNOWN
     Dates: start: 20200830
  17. MORPHINE SULFATE [Suspect]
     Active Substance: MORPHINE SULFATE
     Indication: Prophylaxis
     Dates: start: 20200731
  18. MORPHINE SULFATE [Suspect]
     Active Substance: MORPHINE SULFATE
     Indication: Pain
     Dosage: ONCE A DAY
     Dates: start: 20200727
  19. ALBUTEROL [Suspect]
     Active Substance: ALBUTEROL
     Indication: Prophylaxis
     Dosage: UNKNOWN
  20. ACETAMINOPHEN\CODEINE PHOSPHATE [Suspect]
     Active Substance: ACETAMINOPHEN\CODEINE PHOSPHATE
     Indication: Headache
     Dosage: Q12H
  21. SPIRIVA [Suspect]
     Active Substance: TIOTROPIUM BROMIDE MONOHYDRATE
     Indication: Chronic obstructive pulmonary disease
     Dosage: ONCE A DAY
     Route: 065
  22. TIOTROPIUM [Suspect]
     Active Substance: TIOTROPIUM
     Indication: Chronic obstructive pulmonary disease
     Dosage: ONCE A DAY
  23. VENLAFAXINE [Suspect]
     Active Substance: VENLAFAXINE HYDROCHLORIDE
     Indication: Depression
     Dosage: 0.5 DAY
     Route: 065
     Dates: start: 20200820
  24. VORICONAZOLE [Suspect]
     Active Substance: VORICONAZOLE
     Indication: Neutropenic sepsis
     Dosage: 1 DOSAGE FORM, ONCE A DAY
     Route: 065
     Dates: start: 20200830
  25. ZOLMITRIPTAN [Suspect]
     Active Substance: ZOLMITRIPTAN
     Indication: Pain
     Dosage: ONCE A DAY
     Route: 065
  26. ZOPICLONE [Suspect]
     Active Substance: ZOPICLONE
     Indication: Prophylaxis
     Dosage: QD
     Dates: start: 20200731
  27. MAGNESIUM [Concomitant]
     Active Substance: MAGNESIUM
     Indication: Product used for unknown indication
     Dosage: UNKNOWN
     Dates: start: 20200819, end: 20200819
  28. METOCLOPRAMIDE [Concomitant]
     Active Substance: METOCLOPRAMIDE
     Indication: Vomiting
     Dosage: 1 DOSAGE FORM, FOUR TIMES/DAY
     Route: 065
     Dates: start: 20200819, end: 20200819
  29. PHOSPHATE ION [Concomitant]
     Active Substance: PHOSPHATE ION
     Indication: Product used for unknown indication
     Dosage: 1 DOSAGE FORM
     Route: 065
     Dates: start: 20200825, end: 20200825
  30. PHOSPHORIC ACID [Concomitant]
     Active Substance: PHOSPHORIC ACID
     Indication: Product used for unknown indication
     Dosage: FOUR TIMES/DAY
     Route: 065
     Dates: start: 20210825, end: 20210825
  31. POTASSIUM CHLORIDE [Concomitant]
     Active Substance: POTASSIUM CHLORIDE
     Indication: Prophylaxis
     Dosage: 0.5 DAILY
     Route: 065
     Dates: start: 20200819
  32. SANDO-K [Concomitant]
     Indication: Prophylaxis
     Dosage: TWO TIMES A DAY
     Route: 065
     Dates: start: 20200919
  33. ATEZOLIZUMAB [Concomitant]
     Active Substance: ATEZOLIZUMAB
     Indication: Product used for unknown indication
     Dosage: UNKNOWN
     Route: 041
  34. ONDANSETRON [Concomitant]
     Active Substance: ONDANSETRON
     Indication: Product used for unknown indication
     Dosage: UNKNOWN
     Dates: start: 20200729, end: 20200729

REACTIONS (25)
  - Skin candida [Fatal]
  - Vomiting [Fatal]
  - Mucosal inflammation [Fatal]
  - Productive cough [Fatal]
  - Dyspnoea [Fatal]
  - Headache [Fatal]
  - Hypokalaemia [Fatal]
  - Neutropenic sepsis [Fatal]
  - Dehydration [Fatal]
  - Dysphagia [Fatal]
  - Product use in unapproved indication [Fatal]
  - Nausea [Fatal]
  - Mouth ulceration [Fatal]
  - Constipation [Fatal]
  - Hypomagnesaemia [Fatal]
  - Nervous system disorder [Fatal]
  - Anaemia [Fatal]
  - Diarrhoea [Fatal]
  - Depression [Fatal]
  - Death [Fatal]
  - Decreased appetite [Fatal]
  - Gait disturbance [Fatal]
  - Neutrophil count decreased [Fatal]
  - Asthenia [Fatal]
  - Balance disorder [Unknown]

NARRATIVE: CASE EVENT DATE: 20200730
